FAERS Safety Report 8227488-2 (Version None)
Quarter: 2012Q1

REPORT INFORMATION
  Report Type: 
  Country: None (occurrence: None)
  Receive Date: 20120322
  Receipt Date: 20120313
  Transmission Date: 20120608
  Serious: Yes (Other)
  Sender: FDA-Public Use
  Company Number: PHHY2012US022328

PATIENT
  Sex: Female

DRUGS (3)
  1. DOPAMINE HCL [Concomitant]
  2. ALDESLEUKIN [Suspect]
     Dosage: 600 KIU/KG, Q8H, 4 DOSES DURING THE CYCLE
     Route: 042
     Dates: start: 20101004, end: 20101006
  3. ALDESLEUKIN [Suspect]
     Indication: RENAL CELL CARCINOMA
     Dosage: 600 KIU/KG, Q8H, 11 DOSES DURING THE CYCLE
     Route: 042
     Dates: start: 20100920, end: 20100924

REACTIONS (5)
  - SOMNOLENCE [None]
  - BLOOD CREATINE ABNORMAL [None]
  - PRESYNCOPE [None]
  - DIARRHOEA [None]
  - ACIDOSIS [None]
